FAERS Safety Report 10203796 (Version 1)
Quarter: 2014Q2

REPORT INFORMATION
  Report Type: Report from Study
  Country: GB (occurrence: None)
  Receive Date: 20140523
  Receipt Date: 20140523
  Transmission Date: 20141212
  Serious: Yes (Other)
  Sender: FDA-Public Use
  Company Number: 2014-10421

PATIENT
  Age: 39 Year
  Sex: Female
  Weight: 89 kg

DRUGS (3)
  1. ULIPRISTAL ACETATE [Suspect]
     Indication: UTERINE LEIOMYOMA
     Dates: start: 20140406, end: 20140430
  2. METFORMIN (METFORMIN) [Concomitant]
  3. NUROFEN /00109201/(IBUPROFEN) [Concomitant]

REACTIONS (8)
  - Chest pain [None]
  - Pain [None]
  - Nausea [None]
  - Headache [None]
  - Muscle spasms [None]
  - Constipation [None]
  - Confusional state [None]
  - Muscle spasms [None]
